FAERS Safety Report 4597052-5 (Version None)
Quarter: 2005Q1

REPORT INFORMATION
  Report Type: 
  Country: None (occurrence: None)
  Receive Date: 20050301
  Receipt Date: 20050217
  Transmission Date: 20050727
  Serious: Yes (Hospitalization)
  Sender: FDA-Public Use
  Company Number: GXKR2005FR00569

PATIENT
  Age: 49 Year
  Sex: Female

DRUGS (7)
  1. ALPRAZOLAM [Suspect]
     Dosage: 1 MG, QD, ORAL
     Route: 048
     Dates: start: 20050113
  2. MORPHINE SULFATE [Suspect]
     Dosage: 30 MG, BID, ORAL
     Route: 048
     Dates: start: 20050120, end: 20050122
  3. ACTISKENAN (MORPHINE SULFATE) [Suspect]
     Dosage: 10 MG
     Dates: start: 20050120, end: 20050122
  4. STILNOX (ZOLPIDEM) [Concomitant]
  5. ATARAX [Concomitant]
  6. AMITRIPTYLINE HCL [Concomitant]
  7. CODOLIPRANE (CODEINE PHOSPHATE, PARACETAMOL) [Concomitant]

REACTIONS (6)
  - DISTURBANCE IN ATTENTION [None]
  - HYPERHIDROSIS [None]
  - RESPIRATORY FAILURE [None]
  - SOMNOLENCE [None]
  - TACHYCARDIA [None]
  - TREMOR [None]
